FAERS Safety Report 8909632 (Version 2)
Quarter: 2012Q4

REPORT INFORMATION
  Report Type: 
  Country: US (occurrence: US)
  Receive Date: 20121115
  Receipt Date: 20121207
  Transmission Date: 20130627
  Serious: No
  Sender: FDA-Public Use
  Company Number: US-VERTEX PHARMACEUTICAL INC.-2012-024492

PATIENT
  Sex: Female
  Weight: 60 kg

DRUGS (4)
  1. VX-950 (TELAPREVIR) [Suspect]
     Indication: HEPATITIS C
     Dosage: 750 mg, tid
     Route: 048
     Dates: start: 201209
  2. PEGASYS [Concomitant]
     Indication: HEPATITIS C
     Dosage: 180 ?g, qw
     Route: 058
     Dates: start: 201209
  3. RIBASPHERE [Concomitant]
     Indication: HEPATITIS C
     Dosage: 400 mg am/ 600 mg pm
     Route: 048
     Dates: start: 201209
  4. MULTIVITAMIN                       /00097801/ [Concomitant]
     Dosage: 1 DF, qd
     Route: 048

REACTIONS (3)
  - Visual impairment [Unknown]
  - Swelling face [Unknown]
  - Pruritus [Unknown]
